FAERS Safety Report 18809277 (Version 1)
Quarter: 2021Q1

REPORT INFORMATION
  Report Type: Spontaneous
  Country: GB (occurrence: GB)
  Receive Date: 20210129
  Receipt Date: 20210129
  Transmission Date: 20210419
  Serious: Yes (Other)
  Sender: FDA-Public Use
  Company Number: GB-TEVA-2021-GB-1871804

PATIENT
  Age: 83 Year
  Sex: Male
  Weight: 74.38 kg

DRUGS (6)
  1. WARFARIN POTASSIUM [Suspect]
     Active Substance: WARFARIN POTASSIUM
     Indication: PULMONARY EMBOLISM
     Route: 048
     Dates: start: 20180123
  2. ATORVASTATIN [Concomitant]
     Active Substance: ATORVASTATIN
  3. FINASTERIDE. [Concomitant]
     Active Substance: FINASTERIDE
  4. LEVOTHYROXINE SODIUM. [Concomitant]
     Active Substance: LEVOTHYROXINE SODIUM
  5. LORATADINE. [Concomitant]
     Active Substance: LORATADINE
  6. ALFUZOSIN HYDROCHLORIDE. [Concomitant]
     Active Substance: ALFUZOSIN HYDROCHLORIDE

REACTIONS (1)
  - Limb discomfort [Not Recovered/Not Resolved]

NARRATIVE: CASE EVENT DATE: 201802
